FAERS Safety Report 11822305 (Version 2)
Quarter: 2016Q1

REPORT INFORMATION
  Report Type: Spontaneous
  Country: US (occurrence: US)
  Receive Date: 20151210
  Receipt Date: 20160202
  Transmission Date: 20160525
  Serious: No
  Sender: FDA-Public Use
  Company Number: US-JNJFOC-20150815990

PATIENT
  Age: 77 Year
  Sex: Female

DRUGS (17)
  1. ISOSORBIDE. [Concomitant]
     Active Substance: ISOSORBIDE
  2. PROCRIT [Concomitant]
     Active Substance: ERYTHROPOIETIN
  3. PREDNISONE. [Concomitant]
     Active Substance: PREDNISONE
  4. CLONIDINE. [Concomitant]
     Active Substance: CLONIDINE
  5. MAGNESIUM [Concomitant]
     Active Substance: MAGNESIUM
  6. ONDANSETRON [Concomitant]
     Active Substance: ONDANSETRON
  7. VITAMIN D [Concomitant]
     Active Substance: CHOLECALCIFEROL
  8. CLONIDINE HYDROCHLORIDE. [Concomitant]
     Active Substance: CLONIDINE HYDROCHLORIDE
  9. FOLIC ACID. [Concomitant]
     Active Substance: FOLIC ACID
  10. ISOSORBIDE MONONITRATE. [Concomitant]
     Active Substance: ISOSORBIDE MONONITRATE
  11. METOPROLOL. [Concomitant]
     Active Substance: METOPROLOL
  12. FUROSEMIDE. [Concomitant]
     Active Substance: FUROSEMIDE
  13. MAGNESIUM OXIDE. [Concomitant]
     Active Substance: MAGNESIUM OXIDE
  14. ACETAMINOPHEN. [Concomitant]
     Active Substance: ACETAMINOPHEN
  15. CALCIUM CARBONATE. [Concomitant]
     Active Substance: CALCIUM CARBONATE
  16. DIOVAN [Concomitant]
     Active Substance: VALSARTAN
  17. IMBRUVICA [Suspect]
     Active Substance: IBRUTINIB
     Indication: CHRONIC LYMPHOCYTIC LEUKAEMIA
     Route: 048
     Dates: start: 20150401

REACTIONS (5)
  - Feeling abnormal [Unknown]
  - Abdominal discomfort [Unknown]
  - Incorrect dosage administered [Not Recovered/Not Resolved]
  - Muscle spasms [Unknown]
  - Contusion [Unknown]

NARRATIVE: CASE EVENT DATE: 2015
